FAERS Safety Report 23171153 (Version 4)
Quarter: 2024Q1

REPORT INFORMATION
  Report Type: Report from Study
  Country: US (occurrence: US)
  Receive Date: 20231110
  Receipt Date: 20240109
  Transmission Date: 20240410
  Serious: Yes (Other)
  Sender: FDA-Public Use
  Company Number: US-TAIHOP-2023-009534

PATIENT
  Age: 58 Year
  Sex: Male

DRUGS (1)
  1. LONSURF [Suspect]
     Active Substance: TIPIRACIL HYDROCHLORIDE\TRIFLURIDINE
     Indication: Malignant anorectal neoplasm
     Dosage: FORM STRENGTH 15 MG AND 20 MG; CYCLE 1-2
     Route: 048
     Dates: start: 20231109

REACTIONS (8)
  - Pulmonary haemorrhage [Unknown]
  - Pain [Unknown]
  - Asthenia [Unknown]
  - Diarrhoea [Recovering/Resolving]
  - Nausea [Recovering/Resolving]
  - Fatigue [Recovering/Resolving]
  - Therapy interrupted [Unknown]
  - Product distribution issue [Unknown]
